FAERS Safety Report 7637942-X (Version None)
Quarter: 2011Q3

REPORT INFORMATION
  Report Type: 
  Country: None (occurrence: None)
  Receive Date: 20110712
  Receipt Date: 20110701
  Transmission Date: 20111222
  Serious: Yes (Other)
  Sender: FDA-Public Use
  Company Number: 2011028992

PATIENT
  Age: 3 Year
  Sex: Male
  Weight: 13.6079 kg

DRUGS (5)
  1. AZITHROMYCIN [Concomitant]
  2. ADVAIR DISKUS 100/50 [Concomitant]
  3. XOPENEX [Concomitant]
  4. ATROVENT [Concomitant]
  5. HIZENTRA [Suspect]
     Indication: IMMUNODEFICIENCY
     Dosage: 3 G 1X/WEEK, 15 ML WEEKLY IN 2 SITES OVER 1-2 HOURS SUBCUTANEOUS)
     Route: 058

REACTIONS (2)
  - SKIN INFECTION [None]
  - UPPER RESPIRATORY TRACT INFECTION [None]
